FAERS Safety Report 11350804 (Version 1)
Quarter: 2015Q3

REPORT INFORMATION
  Report Type: Spontaneous
  Country: US (occurrence: US)
  Receive Date: 20150807
  Receipt Date: 20150807
  Transmission Date: 20151125
  Serious: No
  Sender: FDA-Public Use
  Company Number: US-JNJFOC-20150316596

PATIENT
  Age: 71 Year
  Sex: Female
  Weight: 68.04 kg

DRUGS (1)
  1. VISINE A [Suspect]
     Active Substance: NAPHAZOLINE HYDROCHLORIDE\PHENIRAMINE MALEATE
     Indication: ASTHENOPIA
     Dosage: 1 SQUEEZE EACH EYE
     Route: 047
     Dates: start: 20150317, end: 20150319

REACTIONS (3)
  - Eye irritation [Recovered/Resolved]
  - Product use issue [Unknown]
  - Eye pruritus [Recovered/Resolved]

NARRATIVE: CASE EVENT DATE: 20150317
